FAERS Safety Report 6871222-5 (Version None)
Quarter: 2010Q3

REPORT INFORMATION
  Report Type: 
  Country: None (occurrence: None)
  Receive Date: 20100723
  Receipt Date: 20100712
  Transmission Date: 20110219
  Serious: Yes (Hospitalization, Other)
  Sender: FDA-Public Use
  Company Number: US-PFIZER INC-2010009667

PATIENT
  Sex: Male

DRUGS (8)
  1. CHANTIX [Suspect]
     Indication: SMOKING CESSATION THERAPY
     Dosage: 0.5 MG/1 MG
     Route: 048
     Dates: start: 20071210, end: 20080126
  2. KLONOPIN [Concomitant]
     Indication: ANXIETY
     Dosage: UNK
     Dates: start: 20000101
  3. ZOCOR [Concomitant]
     Dosage: UNK
     Dates: start: 20000101
  4. FOLIC ACID [Concomitant]
     Dosage: UNK
     Dates: start: 20000101
  5. PRILOSEC [Concomitant]
     Dosage: UNK
     Dates: start: 20070101
  6. VALIUM [Concomitant]
     Dosage: UNK
     Dates: start: 20000101
  7. ADVAIR DISKUS 100/50 [Concomitant]
     Dosage: UNK
     Dates: start: 20030101
  8. ALBUTEROL [Concomitant]
     Dosage: UNK
     Dates: start: 20030101

REACTIONS (7)
  - AMNESIA [None]
  - ANXIETY [None]
  - DEPRESSION [None]
  - INTENTIONAL OVERDOSE [None]
  - IRRITABILITY [None]
  - NIGHTMARE [None]
  - SUICIDE ATTEMPT [None]
